FAERS Safety Report 6426719-9 (Version None)
Quarter: 2009Q4

REPORT INFORMATION
  Report Type: 
  Country: None (occurrence: None)
  Receive Date: 20091104
  Receipt Date: 20091029
  Transmission Date: 20100525
  Serious: Yes (Other)
  Sender: FDA-Public Use
  Company Number: CA-ELI_LILLY_AND_COMPANY-CA200910003293

PATIENT
  Age: 41 Year
  Sex: Female

DRUGS (2)
  1. HUMULIN 70/30 [Suspect]
     Indication: DIABETES MELLITUS
     Dosage: 32 U, EACH MORNING
     Dates: start: 20060101
  2. HUMULIN 70/30 [Suspect]
     Dosage: 32 U, EACH EVENING
     Dates: start: 20060101

REACTIONS (2)
  - AMNESIA [None]
  - THROMBOTIC STROKE [None]
